FAERS Safety Report 14342796 (Version 3)
Quarter: 2018Q3

REPORT INFORMATION
  Report Type: Spontaneous
  Country: US (occurrence: US)
  Receive Date: 20180102
  Receipt Date: 20180914
  Transmission Date: 20181010
  Serious: Yes (Hospitalization)
  Sender: FDA-Public Use
  Company Number: US-DSJP-DSU-2017-147197

PATIENT

DRUGS (1)
  1. BENICAR [Suspect]
     Active Substance: OLMESARTAN MEDOXOMIL
     Indication: HYPERTENSION
     Dosage: 20 MG, QD
     Route: 048
     Dates: start: 20120201, end: 20151019

REACTIONS (8)
  - Gastroenteritis [Recovering/Resolving]
  - Weight decreased [Recovered/Resolved]
  - Large intestine polyp [Recovered/Resolved]
  - Duodenitis [Recovered/Resolved]
  - Haemorrhoids [Unknown]
  - Hiatus hernia [Not Recovered/Not Resolved]
  - Diverticulitis [Recovering/Resolving]
  - Barrett^s oesophagus [Not Recovered/Not Resolved]

NARRATIVE: CASE EVENT DATE: 20121001
